FAERS Safety Report 7556369-2 (Version None)
Quarter: 2011Q2

REPORT INFORMATION
  Report Type: 
  Country: None (occurrence: None)
  Receive Date: 20110620
  Receipt Date: 20110606
  Transmission Date: 20111010
  Serious: Yes (Hospitalization)
  Sender: FDA-Public Use
  Company Number: JP-ELI_LILLY_AND_COMPANY-JP201105008474

PATIENT
  Sex: Female

DRUGS (12)
  1. CELECOXIB [Concomitant]
     Dosage: 100 MG, BID
     Route: 048
  2. NAUZELIN [Concomitant]
     Dosage: 10 MG, TID
     Route: 048
  3. TOLEDOMIN [Concomitant]
     Dosage: 15 MG, QD
     Route: 048
  4. ALFAROL [Concomitant]
     Dosage: 1 UG, QD
     Route: 048
  5. LYRICA [Concomitant]
     Dosage: 25 MG, QID
     Route: 048
  6. CANDESARTAN CILEXETIL [Concomitant]
     Dosage: 8 MG, QD
     Route: 048
  7. FORTEO [Suspect]
     Dosage: 20 UG, QD
     Route: 058
     Dates: start: 20101217
  8. LANSOPRAZOLE [Concomitant]
     Dosage: 30 MG, QD
     Route: 048
  9. GASMOTIN [Concomitant]
     Dosage: 5 MG, TID
     Route: 048
  10. PURSENNID [Concomitant]
     Dosage: 12 MG, TID
     Route: 048
  11. PREDNISOLONE [Concomitant]
     Dosage: 5 MG, QID
     Route: 048
  12. RINLAXER [Concomitant]
     Dosage: 250 MG, TID
     Route: 048

REACTIONS (3)
  - OESOPHAGEAL PERFORATION [None]
  - UVEITIS [None]
  - PNEUMOMEDIASTINUM [None]
